FAERS Safety Report 4479083-9 (Version None)
Quarter: 2004Q4

REPORT INFORMATION
  Report Type: 
  Country: None (occurrence: None)
  Receive Date: 20041015
  Receipt Date: 20040929
  Transmission Date: 20050328
  Serious: Yes (Hospitalization)
  Sender: FDA-Public Use
  Company Number: S04-FRA-06397-01

PATIENT
  Age: 38 Year
  Sex: Male

DRUGS (2)
  1. CITALOPRAM [Suspect]
     Dosage: 160 MG ONCE; PO
     Route: 048
  2. ALCOHOL [Suspect]

REACTIONS (4)
  - BLOOD PRESSURE ABNORMAL [None]
  - COMA [None]
  - HYPOVENTILATION [None]
  - MULTIPLE DRUG OVERDOSE INTENTIONAL [None]
